FAERS Safety Report 7057180-1 (Version None)
Quarter: 2010Q4

REPORT INFORMATION
  Report Type: 
  Country: None (occurrence: None)
  Receive Date: 20101022
  Receipt Date: 20101005
  Transmission Date: 20110411
  Serious: Yes (Other)
  Sender: FDA-Public Use
  Company Number: JP-BAYER-201013802BYL

PATIENT
  Age: 74 Year
  Sex: Male
  Weight: 52 kg

DRUGS (4)
  1. NEXAVAR [Suspect]
     Indication: HEPATIC NEOPLASM MALIGNANT
     Dosage: UNIT DOSE: 200 MG
     Route: 048
     Dates: start: 20090817, end: 20100201
  2. NEXAVAR [Suspect]
     Dosage: UNIT DOSE: 200 MG
     Route: 048
     Dates: start: 20100202
  3. URSO 250 [Concomitant]
     Indication: HEPATIC CIRRHOSIS
     Route: 048
     Dates: start: 20060607
  4. LIVACT [Concomitant]
     Indication: HEPATIC CIRRHOSIS
     Dosage: TOTAL DAILY DOSE: 8.3 G
     Route: 048
     Dates: start: 20070727

REACTIONS (3)
  - ASCITES [None]
  - LIVER DISORDER [None]
  - PALMAR-PLANTAR ERYTHRODYSAESTHESIA SYNDROME [None]
